FAERS Safety Report 6831341-6 (Version None)
Quarter: 2010Q3

REPORT INFORMATION
  Report Type: 
  Country: None (occurrence: None)
  Receive Date: 20100707
  Receipt Date: 20100624
  Transmission Date: 20110219
  Serious: Yes (Other)
  Sender: FDA-Public Use
  Company Number: 7008231

PATIENT
  Age: 44 Year
  Sex: Female
  Weight: 113 kg

DRUGS (9)
  1. REBIF [Suspect]
     Indication: MULTIPLE SCLEROSIS
     Dosage: 8.8 MCG, 3 IN 1 WK, SUBCUTANEOUS; 22 MCG, 3 IN 1 WK, SUBCUTANEOUS; 44 MCG, 3 IN 1 WK, SUBCUTANEOUS
     Route: 058
     Dates: start: 20100101, end: 20100101
  2. REBIF [Suspect]
     Indication: MULTIPLE SCLEROSIS
     Dosage: 8.8 MCG, 3 IN 1 WK, SUBCUTANEOUS; 22 MCG, 3 IN 1 WK, SUBCUTANEOUS; 44 MCG, 3 IN 1 WK, SUBCUTANEOUS
     Route: 058
     Dates: start: 20100512, end: 20100101
  3. REBIF [Suspect]
     Indication: MULTIPLE SCLEROSIS
     Dosage: 8.8 MCG, 3 IN 1 WK, SUBCUTANEOUS; 22 MCG, 3 IN 1 WK, SUBCUTANEOUS; 44 MCG, 3 IN 1 WK, SUBCUTANEOUS
     Route: 058
     Dates: start: 20100101
  4. COUMADIN [Suspect]
     Indication: ANTICOAGULANT THERAPY
     Dosage: ORAL
     Route: 048
     Dates: start: 20090601
  5. COUMADIN [Suspect]
     Indication: ANTICOAGULANT THERAPY
     Dosage: ORAL
     Route: 048
     Dates: start: 20090601
  6. POTASSIUM (POTASSIUM GLUCONATE) [Concomitant]
  7. HYDROCHLOROTHIAZIDE [Concomitant]
  8. SYNTHROID [Concomitant]
  9. UNSPECIFIED MEDICATIONS (ALL OTHER THERAPEUTIC PRODUCTS) [Concomitant]

REACTIONS (8)
  - ABDOMINAL DISCOMFORT [None]
  - BLOOD VISCOSITY INCREASED [None]
  - CHEST DISCOMFORT [None]
  - FATIGUE [None]
  - INJECTION SITE ERYTHEMA [None]
  - INTERNATIONAL NORMALISED RATIO ABNORMAL [None]
  - MUSCULAR WEAKNESS [None]
  - PROTHROMBIN TIME ABNORMAL [None]
